FAERS Safety Report 8203010-1 (Version None)
Quarter: 2012Q1

REPORT INFORMATION
  Report Type: 
  Country: None (occurrence: None)
  Receive Date: 20120312
  Receipt Date: 20120308
  Transmission Date: 20120608
  Serious: Yes (Other)
  Sender: FDA-Public Use
  Company Number: US-ABBOTT-12P-163-0912377-00

PATIENT
  Sex: Female
  Weight: 81.72 kg

DRUGS (3)
  1. MIRENA [Concomitant]
     Indication: CONTRACEPTION
     Dosage: IUD
     Dates: start: 20100701
  2. HUMIRA [Suspect]
     Indication: PSORIASIS
     Dates: start: 20050801
  3. GLYCOPYRROLATE [Concomitant]
     Indication: HYPERHIDROSIS
     Dates: start: 20100101

REACTIONS (7)
  - HYPOAESTHESIA [None]
  - VAGINAL HAEMORRHAGE [None]
  - NASOPHARYNGITIS [None]
  - MALAISE [None]
  - RESTLESS LEGS SYNDROME [None]
  - INJECTION SITE PAIN [None]
  - MENORRHAGIA [None]
